FAERS Safety Report 8772874 (Version 1)
Quarter: 2012Q4

REPORT INFORMATION
  Report Type: 
  Country: FR (occurrence: FR)
  Receive Date: 20120907
  Receipt Date: 20120907
  Transmission Date: 20130627
  Serious: Yes (Hospitalization, Other)
  Sender: FDA-Public Use
  Company Number: FR-GENZYME-FLUD-1001561

PATIENT
  Age: 62 None
  Sex: Female

DRUGS (15)
  1. FLUDARA [Suspect]
     Indication: CHRONIC LYMPHOCYTIC LEUKAEMIA
     Dosage: 60 mg, qd
     Route: 048
     Dates: start: 20120817, end: 20120819
  2. MABTHERA [Suspect]
     Indication: CHRONIC LYMPHOCYTIC LEUKAEMIA
     Dosage: 810 mg, qd
     Route: 042
     Dates: start: 20120724, end: 20120726
  3. MABTHERA [Suspect]
     Dosage: 810 mg, qd
     Route: 042
     Dates: start: 20120801, end: 20120801
  4. MABTHERA [Suspect]
     Dosage: 810 mg, qd
     Route: 042
     Dates: start: 20120808, end: 20120808
  5. MABTHERA [Suspect]
     Dosage: 810 mg, qd
     Route: 042
     Dates: start: 20120816, end: 20120816
  6. ENDOXAN [Suspect]
     Indication: CHRONIC LYMPHOCYTIC LEUKAEMIA
     Dosage: 400 mg, qd
     Route: 048
     Dates: start: 20120817, end: 20120819
  7. ZOPHREN [Suspect]
     Indication: CHRONIC LYMPHOCYTIC LEUKAEMIA
     Dosage: UNK
     Route: 048
     Dates: start: 201207
  8. ZOPHREN [Suspect]
     Dosage: 8 mg, UNK
     Route: 048
     Dates: start: 20120817, end: 20120819
  9. POLARAMINE [Suspect]
     Indication: CHRONIC LYMPHOCYTIC LEUKAEMIA
     Dosage: UNK
     Route: 065
     Dates: start: 201207
  10. POLARAMINE [Suspect]
     Dosage: UNK UNK, UNK
     Route: 048
     Dates: start: 20120816, end: 20120816
  11. SOLU-MEDROL [Concomitant]
     Indication: CHRONIC LYMPHOCYTIC LEUKAEMIA
     Dosage: UNK
     Route: 042
     Dates: start: 201207
  12. SOLU-MEDROL [Concomitant]
     Dosage: UNK
     Route: 065
     Dates: start: 201208
  13. PARACETAMOL [Concomitant]
     Indication: CHRONIC LYMPHOCYTIC LEUKAEMIA
     Dosage: UNK
     Route: 065
     Dates: start: 201207
  14. BACTRIM [Concomitant]
     Indication: PRODUCT USED FOR UNKNOWN INDICATION
     Dosage: UNK
     Route: 065
     Dates: start: 20120727
  15. ZELITREX [Concomitant]
     Indication: PRODUCT USED FOR UNKNOWN INDICATION
     Dosage: UNK
     Route: 065
     Dates: start: 20120727

REACTIONS (5)
  - Inflammation [Unknown]
  - Bronchitis [Unknown]
  - Pyrexia [Recovered/Resolved]
  - Chills [Recovered/Resolved]
  - Cough [Unknown]
